FAERS Safety Report 8513922-7 (Version None)
Quarter: 2012Q3

REPORT INFORMATION
  Report Type: 
  Country: None (occurrence: None)
  Receive Date: 20120717
  Receipt Date: 20120702
  Transmission Date: 20120928
  Serious: Yes (Hospitalization, Other)
  Sender: FDA-Public Use
  Company Number: US-009507513-2012SP024147

PATIENT

DRUGS (4)
  1. RIBAVIRIN [Suspect]
     Indication: HEPATITIS C
     Dosage: 600 MG, UNKNOWN
     Route: 065
     Dates: start: 20120316, end: 20120424
  2. RIBAVIRIN [Suspect]
     Dosage: 400 MG, UNKNOWN
     Route: 065
  3. PEGASYS [Concomitant]
     Indication: HEPATITIS C
     Dosage: UNK UNK, UNKNOWN
     Route: 065
     Dates: start: 20120316, end: 20120424
  4. PEGASYS [Concomitant]
     Dosage: UNK UNK, UNKNOWN
     Route: 065

REACTIONS (4)
  - DEHYDRATION [None]
  - ALOPECIA [None]
  - NAUSEA [None]
  - ANAEMIA [None]
